FAERS Safety Report 9065399 (Version 1)
Quarter: 2013Q1

REPORT INFORMATION
  Report Type: Report from Study
  Country: US (occurrence: US)
  Receive Date: 20130131
  Receipt Date: 20130131
  Transmission Date: 20140127
  Serious: No
  Sender: FDA-Public Use
  Company Number: US-ABBOTT-12P-163-1021707-00

PATIENT
  Age: 60 None
  Sex: Female
  Weight: 69.01 kg

DRUGS (5)
  1. HUMIRA [Suspect]
     Indication: RHEUMATOID ARTHRITIS
     Dates: start: 2002, end: 2006
  2. HUMIRA [Suspect]
     Dates: start: 2006
  3. HUMIRA [Suspect]
     Indication: RHEUMATOID ARTHRITIS
     Dates: end: 2010
  4. METHOTREXATE [Concomitant]
     Indication: RHEUMATOID ARTHRITIS
  5. MOBIC [Concomitant]
     Indication: PAIN

REACTIONS (4)
  - Fatigue [Recovering/Resolving]
  - Drug dose omission [Unknown]
  - Arthralgia [Recovered/Resolved]
  - Rheumatoid arthritis [Recovering/Resolving]
